FAERS Safety Report 4477634-1 (Version None)
Quarter: 2004Q4

REPORT INFORMATION
  Report Type: 
  Country: None (occurrence: None)
  Receive Date: 20041014
  Receipt Date: 20041001
  Transmission Date: 20050328
  Serious: Yes (Life-Threatening, Hospitalization, Other)
  Sender: FDA-Public Use
  Company Number: 2004061440

PATIENT
  Age: 47 Year
  Sex: Female
  Weight: 63.05 kg

DRUGS (13)
  1. NEURONTIN [Suspect]
     Indication: NEURALGIA
     Dosage: 1800 MG (600 MG, 3 IN 1 1 D), ORAL
     Route: 048
     Dates: start: 20020101, end: 20040701
  2. TIAGABINE HYDROCHLORIDE (TIAGABINE HYDROCHLORIDE) [Concomitant]
  3. CYCLOBENZAPRINE HYDROCHLORIDE [Concomitant]
  4. CONJUGATED ESTROGENS [Concomitant]
  5. ZOLPIDEM TARTRATE [Concomitant]
  6. PAROXETINE HCL [Concomitant]
  7. TIZANIDINE (TIZANIDINE) [Concomitant]
  8. SERETIDE MITE (FLUTICASONE PROPIONATE, SALMETEROL XINAFOATE) [Concomitant]
  9. SALBUTAMOL (SALBUTAMOL) [Concomitant]
  10. EPINEPHRINE [Concomitant]
  11. PREDNISONE [Concomitant]
  12. MONTELUKAST SODIUM (MONTELUKAST SODIUM) [Concomitant]
  13. LORAZEPAM [Concomitant]

REACTIONS (13)
  - BACK PAIN [None]
  - COMA [None]
  - FEELING HOT [None]
  - HALLUCINATION, VISUAL [None]
  - HEPATIC FUNCTION ABNORMAL [None]
  - INTRANEURAL CYST [None]
  - MENTAL STATUS CHANGES [None]
  - NEOPLASM [None]
  - NEURALGIA [None]
  - NIGHT SWEATS [None]
  - PERSECUTORY DELUSION [None]
  - POST PROCEDURAL PAIN [None]
  - SUICIDAL IDEATION [None]
